FAERS Safety Report 8841545 (Version 2)
Quarter: 2013Q1

REPORT INFORMATION
  Report Type: Spontaneous
  Country: US (occurrence: US)
  Receive Date: 20121016
  Receipt Date: 20130211
  Transmission Date: 20140127
  Serious: No
  Sender: FDA-Public Use
  Company Number: US-BIOGENIDEC-2012BI044383

PATIENT
  Sex: Female

DRUGS (1)
  1. TYSABRI [Suspect]
     Indication: MULTIPLE SCLEROSIS
     Route: 042
     Dates: start: 20100709

REACTIONS (7)
  - Hypoaesthesia [Not Recovered/Not Resolved]
  - Foot fracture [Recovered/Resolved]
  - Myalgia [Not Recovered/Not Resolved]
  - Post procedural complication [Unknown]
  - Migraine [Unknown]
  - Vertigo [Unknown]
  - Fatigue [Not Recovered/Not Resolved]
